FAERS Safety Report 5372243-4 (Version None)
Quarter: 2007Q2

REPORT INFORMATION
  Report Type: 
  Country: None (occurrence: None)
  Receive Date: 20070627
  Receipt Date: 20070620
  Transmission Date: 20071010
  Serious: Yes (Other)
  Sender: FDA-Public Use
  Company Number: UA-ASTRAZENECA-2007SE03216

PATIENT
  Sex: Male
  Weight: 28 kg

DRUGS (6)
  1. DIPRIVAN [Suspect]
     Indication: ANAESTHESIA
     Route: 042
     Dates: start: 20070531, end: 20070531
  2. DIPRIVAN [Suspect]
     Route: 042
     Dates: start: 20070531, end: 20070531
  3. ATROPIN SULFAS [Concomitant]
  4. DIMEDROL [Concomitant]
  5. OMNOPON [Concomitant]
  6. DIAZEPAM [Concomitant]
     Route: 030

REACTIONS (2)
  - DRUG INEFFECTIVE [None]
  - PSYCHOMOTOR HYPERACTIVITY [None]
